FAERS Safety Report 9186593 (Version 1)
Quarter: 2013Q1

REPORT INFORMATION
  Report Type: Spontaneous
  Country: US (occurrence: US)
  Receive Date: 20130325
  Receipt Date: 20130325
  Transmission Date: 20140127
  Serious: Yes (Death, Other)
  Sender: FDA-Public Use
  Company Number: US-ELI_LILLY_AND_COMPANY-US201303006666

PATIENT
  Sex: 0

DRUGS (5)
  1. GEMCITABINE HYDROCHLORIDE [Suspect]
     Indication: GERM CELL CANCER
     Route: 042
  2. DOCETAXEL [Concomitant]
  3. MELPHALAN [Concomitant]
  4. CARBOPLATIN [Concomitant]
     Dosage: UNK
  5. BEVACIZUMAB [Concomitant]
     Dosage: 5 MG/KG, UNK

REACTIONS (4)
  - Sepsis [Fatal]
  - Mucosal inflammation [Unknown]
  - Rash [None]
  - Transaminases increased [None]
